FAERS Safety Report 17036132 (Version 1)
Quarter: 2019Q4

REPORT INFORMATION
  Report Type: Spontaneous
  Country: US (occurrence: US)
  Receive Date: 20191115
  Receipt Date: 20191115
  Transmission Date: 20200122
  Serious: No
  Sender: FDA-Public Use
  Company Number: US-EISAI MEDICAL RESEARCH-EC-2019-064962

PATIENT
  Age: 62 Year
  Sex: Male

DRUGS (1)
  1. LENVIMA [Suspect]
     Active Substance: LENVATINIB
     Indication: POORLY DIFFERENTIATED THYROID CARCINOMA
     Dosage: DOSE AND FREQUENCY NOT PROVIDED
     Route: 048
     Dates: start: 201707, end: 201802

REACTIONS (1)
  - Haemorrhage [Unknown]

NARRATIVE: CASE EVENT DATE: 201712
